FAERS Safety Report 4759321-5 (Version None)
Quarter: 2005Q3

REPORT INFORMATION
  Report Type: 
  Country: None (occurrence: None)
  Receive Date: 20050826
  Receipt Date: 20050620
  Transmission Date: 20060218
  Serious: Yes (Hospitalization)
  Sender: FDA-Public Use
  Company Number: 214487

PATIENT
  Age: 45 Year
  Sex: Female
  Weight: 122.7 kg

DRUGS (1)
  1. RAPTIVA [Suspect]
     Indication: PSORIASIS
     Dosage: 1.2 MG/KG, 1/WEEK, SUBCUTANEOUS
     Route: 058
     Dates: start: 20050215, end: 20050422

REACTIONS (1)
  - WHITE BLOOD CELL COUNT INCREASED [None]
